FAERS Safety Report 12090669 (Version 1)
Quarter: 2016Q1

REPORT INFORMATION
  Report Type: Spontaneous
  Country: US (occurrence: US)
  Receive Date: 20160218
  Receipt Date: 20160218
  Transmission Date: 20160526
  Serious: No
  Sender: FDA-Public Use
  Company Number: US-PERRIGO-15US003582

PATIENT
  Age: 27 Year
  Sex: Female
  Weight: 126.98 kg

DRUGS (1)
  1. CETIRIZINE HYDROCHLORIDE. [Suspect]
     Active Substance: CETIRIZINE HYDROCHLORIDE
     Indication: OTORRHOEA
     Dosage: 10 MG, QD
     Route: 048
     Dates: start: 20150328, end: 20150331

REACTIONS (4)
  - Lip dry [Unknown]
  - Cheilitis [Unknown]
  - Paraesthesia oral [Unknown]
  - Off label use [Recovered/Resolved]

NARRATIVE: CASE EVENT DATE: 20150328
